FAERS Safety Report 7528504-3 (Version None)
Quarter: 2011Q2

REPORT INFORMATION
  Report Type: 
  Country: None (occurrence: None)
  Receive Date: 20110607
  Receipt Date: 20101118
  Transmission Date: 20111010
  Serious: No
  Sender: FDA-Public Use
  Company Number: US-ASTRAZENECA-2010SE57135

PATIENT
  Age: 72 Year
  Sex: Female

DRUGS (3)
  1. PRILOSEC OTC [Suspect]
     Indication: DYSPEPSIA
     Route: 048
     Dates: start: 20101118, end: 20101118
  2. SALAGEN [Concomitant]
     Indication: DRY MOUTH
     Dosage: UNKNOWN
  3. EYE MEDICATION [Concomitant]
     Dosage: UNKNOWN

REACTIONS (4)
  - FLATULENCE [None]
  - ABDOMINAL DISCOMFORT [None]
  - NAUSEA [None]
  - DIZZINESS [None]
